FAERS Safety Report 7646548-8 (Version None)
Quarter: 2011Q3

REPORT INFORMATION
  Report Type: 
  Country: None (occurrence: None)
  Receive Date: 20110801
  Receipt Date: 20110717
  Transmission Date: 20111222
  Serious: Yes (Other)
  Sender: FDA-Public Use
  Company Number: DE-UCBSA-037890

PATIENT
  Age: 76 Year
  Sex: Female

DRUGS (4)
  1. VALPROIC ACID [Suspect]
  2. VALPROIC ACID [Suspect]
  3. KEPPRA [Suspect]
     Indication: STATUS EPILEPTICUS
     Dates: start: 20110201
  4. KEPPRA [Suspect]
     Indication: PARTIAL SEIZURES
     Dates: start: 20110201

REACTIONS (2)
  - TOXIC ENCEPHALOPATHY [None]
  - CONVULSION [None]
